FAERS Safety Report 11540604 (Version 1)
Quarter: 2015Q3

REPORT INFORMATION
  Report Type: Spontaneous
  Country: US (occurrence: US)
  Receive Date: 20150923
  Receipt Date: 20150923
  Transmission Date: 20151125
  Serious: No
  Sender: FDA-Public Use
  Company Number: US-BEH-2015050798

PATIENT
  Sex: Female
  Weight: 94 kg

DRUGS (22)
  1. EPIPEN AUTOINJECTOR [Concomitant]
     Dosage: 0.3 MG PRN ANA
     Route: 030
  2. PRIVIGEN [Suspect]
     Active Substance: HUMAN IMMUNOGLOBULIN G
     Indication: IMMUNODEFICIENCY COMMON VARIABLE
     Route: 042
  3. TYLENOL EX-STR [Concomitant]
     Dosage: 1TAB PRN
     Route: 048
  4. ZYRTEC [Concomitant]
     Active Substance: CETIRIZINE HYDROCHLORIDE
     Dosage: 1 TAB, QD
     Route: 048
  5. PREVACID [Concomitant]
     Active Substance: LANSOPRAZOLE
     Dosage: PREVACID  DR 30 MG CAPSULE, 1 CAPSULE BID
     Route: 048
  6. PROAIR HFA [Concomitant]
     Active Substance: ALBUTEROL SULFATE
     Dosage: 2 PUFFS, 360 MCG
  7. LORAZEPAM. [Concomitant]
     Active Substance: LORAZEPAM
     Dosage: 1 TAB PRN
     Route: 048
  8. SODIUM CHLORIDE. [Concomitant]
     Active Substance: SODIUM CHLORIDE
     Dosage: 0.9% UD
     Route: 042
  9. XOLAIR [Concomitant]
     Active Substance: OMALIZUMAB
     Dosage: 3 INJ Q4W
     Route: 058
  10. PREDNISONE. [Concomitant]
     Active Substance: PREDNISONE
     Dosage: 1 TAB PRN
     Route: 048
  11. DIPHENHYDRAMINE. [Concomitant]
     Active Substance: DIPHENHYDRAMINE
     Dosage: 25 MG UD
     Route: 048
  12. LYRICA [Concomitant]
     Active Substance: PREGABALIN
     Dosage: 1 CAP BID
  13. OMEPRAZOLE. [Concomitant]
     Active Substance: OMEPRAZOLE
     Dosage: 1 CAP QPM
     Route: 048
  14. VICODIN HP [Concomitant]
     Active Substance: ACETAMINOPHEN\HYDROCODONE BITARTRATE
     Dosage: 1 TAB PRN
     Route: 048
  15. ACETAMINOPHEN. [Concomitant]
     Active Substance: ACETAMINOPHEN
     Dosage: 325 MG UD
     Route: 048
  16. ALBUTEROL. [Concomitant]
     Active Substance: ALBUTEROL
     Dosage: 8 TABS, BID
     Route: 048
  17. SINGULAIR [Concomitant]
     Active Substance: MONTELUKAST SODIUM
     Dosage: 1 TAB QD
     Route: 048
  18. ALBUTEROL. [Concomitant]
     Active Substance: ALBUTEROL
     Dosage: 2.5MG/0.5ML SOL, 1 VIAL PRN
  19. THEO-24 ER 400 MG [Concomitant]
     Dosage: 1 CAP BID
     Route: 048
  20. MEDICAL CANNIBIS CANDY [Concomitant]
     Indication: PAIN
     Dosage: 1 DOSE PRN
     Route: 048
  21. CYMBALTA [Concomitant]
     Active Substance: DULOXETINE HYDROCHLORIDE
     Dosage: 1 CAP QD
     Route: 048
  22. SYMBICORT [Concomitant]
     Active Substance: BUDESONIDE\FORMOTEROL FUMARATE DIHYDRATE
     Dosage: 160-4.5 MCG INHALER, 1 PUFFS BID

REACTIONS (1)
  - Sinusitis [Unknown]
